FAERS Safety Report 20339749 (Version 4)
Quarter: 2022Q1

REPORT INFORMATION
  Report Type: Spontaneous
  Country: DE (occurrence: DE)
  Receive Date: 20220117
  Receipt Date: 20220325
  Transmission Date: 20220423
  Serious: Yes (Hospitalization)
  Sender: FDA-Public Use
  Company Number: DE-GLENMARK PHARMACEUTICALS-2021GMK068397

PATIENT
  Age: 81 Year
  Sex: Male

DRUGS (13)
  1. CLOPIDOGREL [Suspect]
     Active Substance: CLOPIDOGREL BISULFATE
     Indication: Hypoperfusion
     Dosage: 75 MILLIGRAM, OD (EVERY MORNING AT BREAKFAST) STOPPED WITH THE INSTRUCTION FROM NEUROLOGY
     Route: 048
     Dates: start: 202106, end: 20210912
  2. CLOPIDOGREL [Suspect]
     Active Substance: CLOPIDOGREL BISULFATE
     Indication: Cardiovascular event prophylaxis
     Dosage: 75 MILLIGRAM, OD (TRIED AGAIN EVERY MORNING AT BREAKFAST)
     Route: 048
     Dates: start: 20210929
  3. LEVETIRACETAM [Suspect]
     Active Substance: LEVETIRACETAM
     Indication: Hypoperfusion
     Dosage: UNK UNK, BID, 1-0-1 ()
     Route: 065
  4. LEVETIRACETAM [Suspect]
     Active Substance: LEVETIRACETAM
     Dosage: UNK UNK, BID, 1-0-1 ()
     Route: 065
  5. LEVETIRACETAM [Suspect]
     Active Substance: LEVETIRACETAM
     Dosage: 1000 MILLIGRAM, DAILY, 500 MILLIGRAM, BID (1-0-1)
     Route: 065
  6. ATORVASTATIN [Concomitant]
     Active Substance: ATORVASTATIN
     Dosage: UNK ()
     Route: 065
     Dates: start: 202106
  7. ATORVASTATIN [Concomitant]
     Active Substance: ATORVASTATIN
     Indication: Cerebral ischaemia
  8. ATORVASTATIN [Concomitant]
     Active Substance: ATORVASTATIN
     Indication: Cerebral ischaemia
  9. PSYLLIUM (PLANTAGO PSYLLIUM) [Concomitant]
     Indication: Product used for unknown indication
     Dosage: UNK ()
     Route: 065
  10. PROSTAGUTT [Concomitant]
     Dosage: UNK ()
     Route: 065
  11. PROSTAGUTT [Concomitant]
     Dosage: UNK ()
     Route: 065
  12. PROSTAGUTT [Concomitant]
     Indication: Product used for unknown indication
     Dosage: UNK ()
     Route: 065
  13. PROSTAGUTT [Concomitant]
     Indication: Product used for unknown indication
     Dosage: UNK ()
     Route: 065

REACTIONS (8)
  - Contusion [Unknown]
  - Blood urine present [Recovered/Resolved]
  - Therapy cessation [Unknown]
  - Aphasia [Recovered/Resolved]
  - Prostatic adenoma [Recovered/Resolved]
  - Product use in unapproved indication [Unknown]
  - Wound haemorrhage [Recovered/Resolved]
  - Impaired driving ability [Unknown]

NARRATIVE: CASE EVENT DATE: 20210929
